FAERS Safety Report 22270493 (Version 3)
Quarter: 2023Q2

REPORT INFORMATION
  Report Type: Spontaneous
  Country: US (occurrence: US)
  Receive Date: 20230501
  Receipt Date: 20230628
  Transmission Date: 20230722
  Serious: No
  Sender: FDA-Public Use
  Company Number: US-Vifor (International) Inc.-VIT-2023-02736

PATIENT
  Age: 65 Year
  Sex: Female
  Weight: 69.5 kg

DRUGS (10)
  1. MIRCERA [Suspect]
     Active Substance: METHOXY POLYETHYLENE GLYCOL-EPOETIN BETA
     Indication: Anaemia
     Dosage: FIRST DOSE
  2. MIRCERA [Suspect]
     Active Substance: METHOXY POLYETHYLENE GLYCOL-EPOETIN BETA
     Dosage: MIRCERA DOSE NUMBER: 3 AND DOSE CATEGORY: DOSE 3
     Route: 040
     Dates: start: 20230321, end: 20230321
  3. VENOFER [Suspect]
     Active Substance: IRON SUCROSE
     Indication: Product used for unknown indication
     Route: 042
  4. HECTOROL [Concomitant]
     Active Substance: DOXERCALCIFEROL
  5. APIXABAN [Concomitant]
     Active Substance: APIXABAN
     Dosage: TAKE 1 TABLET BY MOUTH EVERY TWELVE HOURS
     Route: 048
  6. BUMETANIDE [Concomitant]
     Active Substance: BUMETANIDE
     Dosage: TAKE 2 MG BY MOUTH AS DIRECTED TAKE ON NON DIALYSIS DAYS
     Route: 048
  7. CALCIUM ACETATE [Concomitant]
     Active Substance: CALCIUM ACETATE
     Dosage: TAKE 1 TABLET BY MOUTH THREE TIMES A DAY WITH MEALS.
     Route: 048
  8. DRISDOL [Concomitant]
     Active Substance: ERGOCALCIFEROL
     Dosage: 50000 UNIT CAPS. TAKE 1 CAPSULE BY MOUTH ONCE A WEEK.
     Route: 048
  9. METOPROLOL SUCCINATE [Concomitant]
     Active Substance: METOPROLOL SUCCINATE
     Dosage: TAKE 1 TABLET BY MOUTH ONCE A DAY
     Route: 048
  10. METOPROLOL SUCCINATE [Concomitant]
     Active Substance: METOPROLOL SUCCINATE
     Dosage: TAKE 3 TABLET BY MOUTH THREE TIMES A DAY
     Route: 048

REACTIONS (2)
  - Drug hypersensitivity [Recovered/Resolved]
  - Feeling hot [Recovered/Resolved]

NARRATIVE: CASE EVENT DATE: 20230321
